FAERS Safety Report 5808120-1 (Version None)
Quarter: 2008Q3

REPORT INFORMATION
  Report Type: 
  Country: None (occurrence: None)
  Receive Date: 20080708
  Receipt Date: 20080625
  Transmission Date: 20090109
  Serious: Yes (Death, Hospitalization, Other)
  Sender: FDA-Public Use
  Company Number: 08P-062-0455425-00

PATIENT
  Sex: Male

DRUGS (1)
  1. SYNAGIS [Suspect]
     Indication: IMMUNISATION
     Dosage: 50 MG (50 MG); SUBCUTANEOUS
     Route: 058
     Dates: start: 20071204, end: 20071204

REACTIONS (13)
  - ANAEMIA [None]
  - CARDIAC FAILURE [None]
  - CYANOSIS NEONATAL [None]
  - DYSPNOEA [None]
  - GENERAL PHYSICAL HEALTH DETERIORATION [None]
  - NEONATAL TACHYCARDIA [None]
  - PNEUMONIA RESPIRATORY SYNCYTIAL VIRAL [None]
  - PULMONARY HYPERTENSION [None]
  - PULMONARY VEIN STENOSIS [None]
  - RESPIRATORY FAILURE [None]
  - RESPIRATORY RATE DECREASED [None]
  - RIGHT VENTRICULAR DYSFUNCTION [None]
  - RIGHT VENTRICULAR FAILURE [None]
